FAERS Safety Report 11142009 (Version 2)
Quarter: 2015Q3

REPORT INFORMATION
  Report Type: Spontaneous
  Country: US (occurrence: US)
  Receive Date: 20150527
  Receipt Date: 20150904
  Transmission Date: 20151125
  Serious: Yes (Hospitalization, Other)
  Sender: FDA-Public Use
  Company Number: US-ASTRAZENECA-2015SE50541

PATIENT
  Age: 23958 Day
  Sex: Female
  Weight: 45.8 kg

DRUGS (2)
  1. LYNPARZA [Suspect]
     Active Substance: OLAPARIB
     Indication: OVARIAN CANCER
     Route: 048
     Dates: start: 20150609
  2. LYNPARZA [Suspect]
     Active Substance: OLAPARIB
     Indication: OVARIAN CANCER
     Route: 048
     Dates: start: 20150119, end: 20150520

REACTIONS (5)
  - Thrombosis [Unknown]
  - Pain in extremity [Not Recovered/Not Resolved]
  - Deep vein thrombosis [Unknown]
  - Oedema [Unknown]
  - Peripheral swelling [Not Recovered/Not Resolved]

NARRATIVE: CASE EVENT DATE: 20150520
